FAERS Safety Report 19884539 (Version 1)
Quarter: 2021Q3

REPORT INFORMATION
  Report Type: Spontaneous
  Country: US (occurrence: US)
  Receive Date: 20210923
  Receipt Date: 20210923
  Transmission Date: 20211014
  Serious: No
  Sender: FDA-Public Use
  Company Number: None

PATIENT
  Age: 68 Year
  Sex: Male
  Weight: 116.12 kg

DRUGS (1)
  1. DOXYCYCLINE (DOXYCYCLINE HYCLATE 100MG CAP) [Suspect]
     Active Substance: DOXYCYCLINE HYCLATE
     Indication: CELLULITIS
     Route: 048
     Dates: start: 20210412, end: 20210421

REACTIONS (2)
  - Early satiety [None]
  - Pancreatitis acute [None]

NARRATIVE: CASE EVENT DATE: 20210421
